FAERS Safety Report 11641904 (Version 1)
Quarter: 2015Q4

REPORT INFORMATION
  Report Type: Spontaneous
  Country: US (occurrence: None)
  Receive Date: 20151019
  Receipt Date: 20151019
  Transmission Date: 20160304
  Serious: Yes (Other)
  Sender: FDA-Public Use
  Company Number: ADR-2014-00413

PATIENT
  Age: 46 Year
  Sex: Female

DRUGS (2)
  1. DIAZEPAM (ORAL) [Suspect]
     Active Substance: DIAZEPAM
     Dosage: 10 MG/DAY
  2. BACLOFEN INTRATHECAL 2,250MCG/ML [Suspect]
     Active Substance: BACLOFEN
     Indication: MUSCLE SPASTICITY
     Dosage: 200.3 MCG/DAY

REACTIONS (18)
  - Oral discomfort [None]
  - Depression [None]
  - Muscle tightness [None]
  - Quality of life decreased [None]
  - No therapeutic response [None]
  - Suicidal ideation [None]
  - Frustration [None]
  - Muscle spasticity [None]
  - Paraesthesia oral [None]
  - Faecal incontinence [None]
  - Device ineffective [None]
  - Overdose [None]
  - Pain [None]
  - Hypotonia [None]
  - Dizziness [None]
  - Adverse drug reaction [None]
  - Musculoskeletal stiffness [None]
  - Urinary incontinence [None]
